FAERS Safety Report 22158919 (Version 3)
Quarter: 2024Q4

REPORT INFORMATION
  Report Type: Report from Study
  Country: US (occurrence: US)
  Receive Date: 20230331
  Receipt Date: 20241205
  Transmission Date: 20250115
  Serious: Yes (Other)
  Sender: NOVARTIS
  Company Number: US-002147023-NVSC2023US071372

PATIENT
  Sex: Female
  Weight: 71.2 kg

DRUGS (37)
  1. KESIMPTA [Suspect]
     Active Substance: OFATUMUMAB
     Indication: Multiple sclerosis
     Dosage: 20MG/0.4ML, QMO (1 PEN AS DIRECTED)
     Route: 058
  2. KESIMPTA [Suspect]
     Active Substance: OFATUMUMAB
     Indication: Relapsing-remitting multiple sclerosis
     Dosage: UNK (0.4ML BY SUBCUTANEOUS ROUTE EVERY 28 DAYS)), 28D
     Route: 058
     Dates: start: 20230407, end: 20240108
  3. KESIMPTA [Suspect]
     Active Substance: OFATUMUMAB
     Dosage: UNK (0.4ML BY SUBCUTANEOUS ROUTE EVERY 28 DAYS)), 28D
     Route: 058
     Dates: start: 20240108, end: 20241104
  4. LAMICTAL [Concomitant]
     Active Substance: LAMOTRIGINE
     Indication: Product used for unknown indication
     Dosage: 50 MG, BID (PATIENT TAKING DIFFERENTLY)
     Route: 065
     Dates: start: 20230927, end: 20240329
  5. LAMICTAL [Concomitant]
     Active Substance: LAMOTRIGINE
     Dosage: 2 DOSAGE FORM, BID (2 TIMES FOR 90 DAYS)
     Route: 048
     Dates: start: 20240329, end: 20240924
  6. ATORVASTATIN CALCIUM [Concomitant]
     Active Substance: ATORVASTATIN CALCIUM
     Indication: Product used for unknown indication
     Dosage: UNK
     Route: 065
  7. KLONOPIN [Concomitant]
     Active Substance: CLONAZEPAM
     Indication: Product used for unknown indication
     Dosage: 1 DOSAGE FORM (1MG), BID
     Route: 065
     Dates: start: 20231127, end: 20240226
  8. KLONOPIN [Concomitant]
     Active Substance: CLONAZEPAM
     Dosage: 1 DOSAGE FORM (1MG), BID
     Route: 065
     Dates: start: 20240529, end: 20240826
  9. NORCO [Concomitant]
     Active Substance: ACETAMINOPHEN\HYDROCODONE BITARTRATE
     Indication: Pain
     Dosage: 1 DOSAGE FORM (TAKE 1 TABLET 3 TIMES DAILY)
     Route: 065
     Dates: start: 20231127, end: 20231226
  10. NORCO [Concomitant]
     Active Substance: ACETAMINOPHEN\HYDROCODONE BITARTRATE
     Dosage: 1 DOSAGE FORM, Q8H (TAKE 1 TABLET EVERY 8 HOURS AS NEEDED))
     Route: 065
     Dates: start: 20240514, end: 20240613
  11. LOPID [Concomitant]
     Active Substance: GEMFIBROZIL
     Indication: Product used for unknown indication
     Dosage: 1 DOSAGE FORM (600 MG), BID
     Route: 065
     Dates: start: 20230721, end: 20240924
  12. HYDROCHLOROTHIAZIDE [Concomitant]
     Active Substance: HYDROCHLOROTHIAZIDE
     Indication: Product used for unknown indication
     Dosage: 1 DOSAGE FORM (1 TABLET EVERY MONDAY, WEDNESDAY, FRIDAY)
     Route: 065
     Dates: start: 20230629, end: 20240719
  13. TENORMIN [Concomitant]
     Active Substance: ATENOLOL
     Indication: Product used for unknown indication
     Dosage: 1 DOSAGE FORM (1 TABLET OF 100 MG), QD
     Route: 065
     Dates: start: 20231128, end: 20240701
  14. POTASSIUM [Concomitant]
     Active Substance: POTASSIUM
     Indication: Product used for unknown indication
     Dosage: UNK
     Route: 065
  15. VITAMIN B2 [Concomitant]
     Active Substance: RIBOFLAVIN
     Indication: Product used for unknown indication
     Dosage: UNK
     Route: 065
  16. VITAMIN B12 [Concomitant]
     Active Substance: CYANOCOBALAMIN
     Indication: Product used for unknown indication
     Dosage: UNK (800-800 MCG)
     Route: 048
  17. MAGNESIUM [Concomitant]
     Active Substance: MAGNESIUM
     Indication: Product used for unknown indication
     Dosage: 500 MG, QD
     Route: 048
  18. VITAMIN D3 [Concomitant]
     Active Substance: CHOLECALCIFEROL
     Indication: Product used for unknown indication
     Dosage: 1 DOSAGE FORM (1 CAPSULE), QD
     Route: 048
  19. VITAMIN D3 [Concomitant]
     Active Substance: CHOLECALCIFEROL
     Dosage: 5000 IU, QD
     Route: 048
  20. CALCIUM [Concomitant]
     Active Substance: CALCIUM
     Indication: Product used for unknown indication
     Dosage: UNK
     Route: 065
  21. FISH OIL [Concomitant]
     Active Substance: FISH OIL
     Indication: Product used for unknown indication
     Dosage: UNK
     Route: 065
  22. ALPHA LIPOIC ACID [Concomitant]
     Active Substance: .ALPHA.-LIPOIC ACID
     Indication: Product used for unknown indication
     Dosage: UNK
     Route: 048
  23. VITAMIN C [Concomitant]
     Active Substance: ASCORBIC ACID
     Indication: Product used for unknown indication
     Dosage: UNK
     Route: 065
  24. LIPITOR [Concomitant]
     Active Substance: ATORVASTATIN CALCIUM
     Indication: Product used for unknown indication
     Dosage: 1 DOSAGE FORM (10 MG), QD
     Route: 048
     Dates: start: 20230705, end: 20240115
  25. LIPITOR [Concomitant]
     Active Substance: ATORVASTATIN CALCIUM
     Dosage: 1 DOSAGE FORM (10 MG), QD
     Route: 065
     Dates: start: 20240115, end: 20240708
  26. LIORESAL [Concomitant]
     Active Substance: BACLOFEN
     Indication: Muscle spasms
     Dosage: 1 DOSAGE FORM, TID
     Route: 048
     Dates: start: 20230720, end: 20240819
  27. AMPYRA [Concomitant]
     Active Substance: DALFAMPRIDINE
     Indication: Product used for unknown indication
     Dosage: 10 MG, BID (IN THE MORNING AND AT THE BEDTIME)
     Route: 048
     Dates: end: 20240108
  28. AMPYRA [Concomitant]
     Active Substance: DALFAMPRIDINE
     Dosage: 10 MG, BID (IN THE MORNING AND AT THE BEDTIME)
     Route: 048
     Dates: start: 20240124, end: 20241106
  29. DIFLUCAN [Concomitant]
     Active Substance: FLUCONAZOLE
     Indication: Product used for unknown indication
     Dosage: 1 DOSAGE FORM (100 MG), QD
     Route: 048
     Dates: start: 20240302, end: 20240705
  30. FOLVITE [Concomitant]
     Active Substance: FOLIC ACID
     Indication: Product used for unknown indication
     Dosage: 800 MG, QD
     Route: 048
  31. FLAGYL [Concomitant]
     Active Substance: METRONIDAZOLE\METRONIDAZOLE HYDROCHLORIDE
     Indication: Product used for unknown indication
     Dosage: 1 DOSAGE FORM, BID (TAKE 1 TABLET BY MOUTH 2 TIMES DAILY FOR 7 DAYS)
     Route: 048
     Dates: start: 20240531, end: 20240607
  32. VITAMIN B3 [Concomitant]
     Active Substance: NIACIN
     Indication: Product used for unknown indication
     Dosage: 1000 MEQ, QD
     Route: 048
  33. POTASSIUM CHLORIDE [Concomitant]
     Active Substance: POTASSIUM CHLORIDE
     Indication: Product used for unknown indication
     Dosage: 1 DOSAGE FORM, BID
     Route: 065
     Dates: start: 20231023, end: 20231226
  34. POTASSIUM CHLORIDE [Concomitant]
     Active Substance: POTASSIUM CHLORIDE
     Dosage: 1 DOSAGE FORM, BID
     Route: 065
     Dates: start: 20240606, end: 20240805
  35. RIBOFLAVIN [Concomitant]
     Active Substance: RIBOFLAVIN
     Indication: Product used for unknown indication
     Dosage: 1 DOSAGE FORM, QD
     Route: 048
  36. VALIUM [Concomitant]
     Active Substance: DIAZEPAM
     Indication: Anxiety
     Dosage: 1 DOSAGE FORM, PRN (TAKE 1 LABLET BY MOUTH AS NEEDED. TAKE 1 TABLET 30 MINUTES PRIOR TO MRI, ADDITIO
     Route: 048
     Dates: start: 20231201, end: 20231205
  37. TYLENOL [Concomitant]
     Active Substance: ACETAMINOPHEN
     Indication: Pain
     Dosage: 325 MG
     Route: 048
     Dates: end: 20231205

REACTIONS (12)
  - Hemiparesis [Unknown]
  - Paraparesis [Unknown]
  - Influenza like illness [Recovered/Resolved]
  - Headache [Unknown]
  - Myalgia [Unknown]
  - Fatigue [Unknown]
  - Urinary tract infection [Unknown]
  - Disturbance in attention [Unknown]
  - Amnesia [Unknown]
  - Balance disorder [Unknown]
  - Gait disturbance [Unknown]
  - Pain [Unknown]
